FAERS Safety Report 17817004 (Version 1)
Quarter: 2020Q2

REPORT INFORMATION
  Report Type: Spontaneous
  Country: US (occurrence: US)
  Receive Date: 20200522
  Receipt Date: 20200522
  Transmission Date: 20200714
  Serious: Yes (Other)
  Sender: FDA-Public Use
  Company Number: None

PATIENT
  Age: 39 Year
  Sex: Female

DRUGS (1)
  1. REMDESIVIR. [Suspect]
     Active Substance: REMDESIVIR
     Indication: COVID-19
     Route: 042
     Dates: start: 20200514, end: 20200522

REACTIONS (3)
  - Hepatic enzyme increased [None]
  - Product use in unapproved indication [None]
  - Clinical trial participant [None]

NARRATIVE: CASE EVENT DATE: 20200522
